FAERS Safety Report 21583791 (Version 1)
Quarter: 2022Q4

REPORT INFORMATION
  Report Type: Spontaneous
  Country: JP (occurrence: JP)
  Receive Date: 20221111
  Receipt Date: 20221111
  Transmission Date: 20230112
  Serious: Yes (Hospitalization)
  Sender: FDA-Public Use
  Company Number: JP-DSJP-DSJ-2022-140756

PATIENT
  Age: 77 Year
  Sex: Female

DRUGS (10)
  1. OLMESARTAN MEDOXOMIL [Suspect]
     Active Substance: OLMESARTAN MEDOXOMIL
     Indication: Hypertension
     Dosage: 20MG/DAY
     Route: 065
  2. OLMESARTAN MEDOXOMIL [Suspect]
     Active Substance: OLMESARTAN MEDOXOMIL
     Dosage: 10MG/DAY
  3. OLMESARTAN MEDOXOMIL [Suspect]
     Active Substance: OLMESARTAN MEDOXOMIL
     Dosage: 10MG/DAY
  4. OLMESARTAN MEDOXOMIL [Suspect]
     Active Substance: OLMESARTAN MEDOXOMIL
     Dosage: 20MG/DAY
     Route: 065
  5. LENVATINIB [Suspect]
     Active Substance: LENVATINIB
     Indication: Hepatocellular carcinoma
     Dosage: 8MG/DAY
     Route: 065
  6. LENVATINIB [Suspect]
     Active Substance: LENVATINIB
     Dosage: 8 OR 4 MG/EACH DAY
     Route: 065
  7. LENVATINIB [Suspect]
     Active Substance: LENVATINIB
     Dosage: 8 OR 4 MG/EACH DAY
     Route: 065
  8. AMLODIPINE BESYLATE [Concomitant]
     Active Substance: AMLODIPINE BESYLATE
     Indication: Hypertension
     Dosage: 2.5MG/DAY
     Route: 065
  9. AMLODIPINE BESYLATE [Concomitant]
     Active Substance: AMLODIPINE BESYLATE
     Dosage: 2.5MG/DAY
     Route: 065
  10. AMLODIPINE BESYLATE [Concomitant]
     Active Substance: AMLODIPINE BESYLATE
     Dosage: 5.0MG/DAY

REACTIONS (4)
  - Thrombotic microangiopathy [Unknown]
  - Renal disorder [Unknown]
  - Renal tubular disorder [Unknown]
  - Hypotension [Unknown]
